FAERS Safety Report 4300348-5 (Version None)
Quarter: 2004Q1

REPORT INFORMATION
  Report Type: 
  Country: None (occurrence: None)
  Receive Date: 20040218
  Receipt Date: 20040205
  Transmission Date: 20041129
  Serious: Yes (Death)
  Sender: FDA-Public Use
  Company Number: 2003125823

PATIENT
  Age: 22 Year
  Sex: Female

DRUGS (6)
  1. ZOLOFT [Suspect]
     Indication: DEPRESSION
     Dosage: 100 MG (DAILY)
     Dates: start: 20030301
  2. ZOLOFT [Suspect]
     Indication: FLASHBACK
     Dosage: 100 MG (DAILY)
     Dates: start: 20030301
  3. ZOLOFT [Suspect]
     Indication: INJURY
     Dosage: 100 MG (DAILY)
     Dates: start: 20030301
  4. ZOLOFT [Suspect]
     Indication: PANIC DISORDER
     Dosage: 100 MG (DAILY)
     Dates: start: 20030301
  5. ZOLOFT [Suspect]
     Indication: POST-TRAUMATIC STRESS DISORDER
     Dosage: 100 MG (DAILY)
     Dates: start: 20030301
  6. TRAZODONE HCL [Suspect]
     Indication: INSOMNIA
     Dosage: 50 MG (DAILY)
     Dates: start: 20030401

REACTIONS (2)
  - INSOMNIA [None]
  - OVERDOSE [None]
